FAERS Safety Report 5161001-1 (Version None)
Quarter: 2006Q4

REPORT INFORMATION
  Report Type: 
  Country: None (occurrence: None)
  Receive Date: 20061130
  Receipt Date: 20061012
  Transmission Date: 20070319
  Serious: Yes (Death, Life-Threatening, Hospitalization, Other)
  Sender: FDA-Public Use
  Company Number: PL-BAYER-200614605GDS

PATIENT
  Age: 57 Year
  Sex: Female
  Weight: 52 kg

DRUGS (8)
  1. SORAFENIB [Suspect]
     Indication: METASTATIC RENAL CELL CARCINOMA
     Dosage: TOTAL DAILY DOSE: 800 MG
     Route: 048
     Dates: start: 20051129, end: 20060927
  2. INTERFERON [Suspect]
     Indication: METASTATIC RENAL CELL CARCINOMA
     Route: 030
     Dates: start: 20050901, end: 20050905
  3. INTERFERON [Suspect]
     Route: 030
     Dates: start: 20050909, end: 20051128
  4. WHOLE BLOOD [Concomitant]
     Indication: HAEMOGLOBIN DECREASED
     Route: 042
     Dates: start: 20051129, end: 20051129
  5. WHOLE BLOOD [Concomitant]
     Route: 042
     Dates: start: 20060818, end: 20060818
  6. CIPROFLOXACIN [Concomitant]
     Indication: URINARY TRACT INFECTION
     Route: 065
     Dates: start: 20060327, end: 20060330
  7. BLOOD SERUM [Concomitant]
     Indication: HAEMOGLOBIN DECREASED
     Route: 042
     Dates: start: 20060818, end: 20060818
  8. CALCIUM [Concomitant]
     Indication: BLOOD CALCIUM DECREASED
     Route: 065
     Dates: start: 20060808, end: 20060818

REACTIONS (5)
  - CARDIOVASCULAR INSUFFICIENCY [None]
  - GASTROINTESTINAL HAEMORRHAGE [None]
  - HAEMOGLOBIN DECREASED [None]
  - MECHANICAL ILEUS [None]
  - SHOCK [None]
